FAERS Safety Report 17294680 (Version 6)
Quarter: 2021Q2

REPORT INFORMATION
  Report Type: Spontaneous
  Country: US (occurrence: US)
  Receive Date: 20200121
  Receipt Date: 20210607
  Transmission Date: 20210716
  Serious: No
  Sender: FDA-Public Use
  Company Number: US-PFIZER INC-2020022741

PATIENT
  Age: 71 Year
  Sex: Female

DRUGS (3)
  1. CELONTIN [Suspect]
     Active Substance: METHSUXIMIDE
     Indication: HYPERLIPIDAEMIA
  2. CELONTIN [Suspect]
     Active Substance: METHSUXIMIDE
     Indication: EPILEPSY
     Dosage: 300 MG, 1X/DAY (1 PO Q DAY (1X/DAY))
     Route: 048
  3. CELONTIN [Suspect]
     Active Substance: METHSUXIMIDE
     Indication: ESSENTIAL HYPERTENSION

REACTIONS (1)
  - Influenza [Unknown]
